FAERS Safety Report 21862667 (Version 1)
Quarter: 2023Q1

REPORT INFORMATION
  Report Type: Spontaneous
  Country: JP (occurrence: JP)
  Receive Date: 20230114
  Receipt Date: 20230114
  Transmission Date: 20230418
  Serious: Yes (Death, Hospitalization, Other)
  Sender: FDA-Public Use
  Company Number: JP-ABBVIE-4270292

PATIENT

DRUGS (1)
  1. VENCLEXTA [Suspect]
     Active Substance: VENETOCLAX
     Indication: Acute myeloid leukaemia
     Route: 048

REACTIONS (16)
  - Acute myeloid leukaemia recurrent [Fatal]
  - Infection [Fatal]
  - Hospitalisation [Unknown]
  - Alveolar lung disease [Unknown]
  - Drug resistance [Unknown]
  - Haemoglobin decreased [Unknown]
  - Neutropenia [Unknown]
  - Haematological infection [Unknown]
  - Platelet count decreased [Unknown]
  - Therapeutic product effect incomplete [Unknown]
  - Pneumonia [Unknown]
  - Thrombocytopenia [Unknown]
  - Cardiac failure [Unknown]
  - Haemorrhage [Fatal]
  - Febrile neutropenia [Unknown]
  - White blood cell count decreased [Unknown]
